FAERS Safety Report 11867018 (Version 1)
Quarter: 2015Q4

REPORT INFORMATION
  Report Type: Spontaneous
  Country: IN (occurrence: IN)
  Receive Date: 20151224
  Receipt Date: 20151224
  Transmission Date: 20160305
  Serious: Yes (Other)
  Sender: FDA-Public Use
  Company Number: IN-PFIZER INC-2015416747

PATIENT
  Age: 31 Year
  Sex: Female

DRUGS (1)
  1. SUTENT [Suspect]
     Active Substance: SUNITINIB MALATE
     Indication: METASTATIC RENAL CELL CARCINOMA
     Dosage: 50 MG, 1X/DAY 4 WEEKS ON AND 2 WEEKS OFF
     Route: 048
     Dates: start: 20150722, end: 2015

REACTIONS (7)
  - Dry skin [Recovered/Resolved]
  - Oligomenorrhoea [Recovered/Resolved]
  - Second primary malignancy [Unknown]
  - Alveolar soft part sarcoma [Unknown]
  - Yellow skin [Recovered/Resolved]
  - Erythema [Recovered/Resolved]
  - Skin fissures [Recovered/Resolved]

NARRATIVE: CASE EVENT DATE: 2015
